FAERS Safety Report 9984991 (Version 1)
Quarter: 2014Q1

REPORT INFORMATION
  Report Type: Report from Study
  Country: US (occurrence: US)
  Receive Date: 20140307
  Receipt Date: 20140307
  Transmission Date: 20141002
  Serious: No
  Sender: FDA-Public Use
  Company Number: US-ABBVIE-14P-163-1186321-00

PATIENT
  Age: 42 Year
  Sex: Female

DRUGS (3)
  1. HUMIRA [Suspect]
     Indication: COLITIS ULCERATIVE
     Dosage: 4 PENS
     Dates: start: 20131223, end: 20131223
  2. HUMIRA [Suspect]
  3. TYLENOL [Concomitant]
     Indication: PAIN

REACTIONS (1)
  - Colitis ulcerative [Not Recovered/Not Resolved]
